FAERS Safety Report 17670884 (Version 1)
Quarter: 2020Q2

REPORT INFORMATION
  Report Type: Report from Study
  Country: CA (occurrence: CA)
  Receive Date: 20200415
  Receipt Date: 20200415
  Transmission Date: 20200713
  Serious: Yes (Other)
  Sender: FDA-Public Use
  Company Number: CA-GLAXOSMITHKLINE-CA2020AMR003703

PATIENT
  Age: 66 Year
  Sex: Female

DRUGS (2)
  1. MEPOLIZUMAB [Suspect]
     Active Substance: MEPOLIZUMAB
     Indication: ASTHMA
     Dosage: 100 MG, Z,MONTHLY
     Route: 042
     Dates: start: 20181214
  2. PREDNISONE. [Suspect]
     Active Substance: PREDNISONE
     Indication: PRODUCT USED FOR UNKNOWN INDICATION
     Dosage: UNK
     Dates: start: 20191215

REACTIONS (10)
  - Paranasal sinus hypersecretion [Not Recovered/Not Resolved]
  - Diabetes mellitus [Unknown]
  - Gastroenteritis viral [Unknown]
  - Cough [Not Recovered/Not Resolved]
  - Vomiting [Unknown]
  - Blood cholesterol increased [Unknown]
  - Influenza [Unknown]
  - Diarrhoea [Unknown]
  - Pulmonary pain [Unknown]
  - Allergic cough [Unknown]

NARRATIVE: CASE EVENT DATE: 20191228
